FAERS Safety Report 8522876-9 (Version None)
Quarter: 2012Q3

REPORT INFORMATION
  Report Type: 
  Country: None (occurrence: None)
  Receive Date: 20120720
  Receipt Date: 20120711
  Transmission Date: 20120928
  Serious: Yes (Hospitalization)
  Sender: FDA-Public Use
  Company Number: US-BIOGENIDEC-2012BI018249

PATIENT
  Age: 39 Year
  Sex: Male

DRUGS (2)
  1. AVONEX [Suspect]
     Indication: MULTIPLE SCLEROSIS
     Route: 030
     Dates: start: 19970101
  2. AVONEX [Suspect]
     Route: 030

REACTIONS (9)
  - MUSCULAR WEAKNESS [None]
  - FATIGUE [None]
  - DYSPNOEA [None]
  - SCOTOMA [None]
  - MOBILITY DECREASED [None]
  - ASTHENIA [None]
  - DUODENAL PERFORATION [None]
  - PAIN [None]
  - ABDOMINAL INFECTION [None]
